FAERS Safety Report 7247373-2 (Version None)
Quarter: 2011Q1

REPORT INFORMATION
  Report Type: 
  Country: None (occurrence: None)
  Receive Date: 20110127
  Receipt Date: 20110117
  Transmission Date: 20110831
  Serious: Yes (Hospitalization, Other)
  Sender: FDA-Public Use
  Company Number: PHHY2011VE04454

PATIENT
  Sex: Female

DRUGS (4)
  1. FLEXURAT [Concomitant]
     Dosage: ONCE A DAY
     Dates: start: 20110120
  2. CALCIUM [Concomitant]
     Dosage: 1500 MG
  3. VITAMIN D [Concomitant]
     Dosage: 300 MG, ONCE A DAY
     Dates: start: 20110120
  4. ACLASTA [Suspect]
     Indication: OSTEOPOROSIS
     Dosage: 5 MG,
     Route: 042
     Dates: start: 20100916

REACTIONS (1)
  - FEMUR FRACTURE [None]
